FAERS Safety Report 9838796 (Version 1)
Quarter: 2014Q1

REPORT INFORMATION
  Report Type: Spontaneous
  Country: GB (occurrence: GB)
  Receive Date: 20140123
  Receipt Date: 20140123
  Transmission Date: 20141002
  Serious: Yes (Disabling, Other)
  Sender: FDA-Public Use
  Company Number: GB-TEVA-455456ISR

PATIENT
  Age: 36 Year
  Sex: Female
  Weight: 60 kg

DRUGS (2)
  1. AMOXICILLIN [Suspect]
     Indication: INCREASED UPPER AIRWAY SECRETION
     Dosage: THREE A DAY
     Route: 048
     Dates: start: 20131226, end: 20131227
  2. OVRANETTE [Concomitant]

REACTIONS (3)
  - Pruritus [Recovering/Resolving]
  - Oropharyngeal pain [Recovered/Resolved]
  - Burning sensation [Recovering/Resolving]
